FAERS Safety Report 16084833 (Version 1)
Quarter: 2019Q1

REPORT INFORMATION
  Report Type: Spontaneous
  Country: US (occurrence: US)
  Receive Date: 20190318
  Receipt Date: 20190318
  Transmission Date: 20190418
  Serious: No
  Sender: FDA-Public Use
  Company Number: US-AVADEL SPECIALTY PHARMACEUTICALS, LLC-2018AVA00539

PATIENT
  Age: 82 Year
  Sex: Male
  Weight: 72.56 kg

DRUGS (7)
  1. FINASTERIDE. [Concomitant]
     Active Substance: FINASTERIDE
  2. VITAMINS [Concomitant]
     Active Substance: VITAMINS
  3. NOCTIVA [Suspect]
     Active Substance: DESMOPRESSIN ACETATE
     Dosage: 0.83 ?G, 1X/DAY APPROXIMATELY30 MINUTES BEFORE BEDTIME
     Route: 045
     Dates: start: 20181207, end: 20181207
  4. NOCTIVA [Suspect]
     Active Substance: DESMOPRESSIN ACETATE
     Dosage: 0.83 ?G, 1X/DAY APPROXIMATELY30 MINUTES BEFORE BEDTIME
     Route: 045
     Dates: start: 2018, end: 2018
  5. TAMSULOSIN [Concomitant]
     Active Substance: TAMSULOSIN
  6. NOCTIVA [Suspect]
     Active Substance: DESMOPRESSIN ACETATE
     Indication: NOCTURIA
     Dosage: 0.83 ?G, 1X/DAY APPROXIMATELY30 MINUTES BEFORE BEDTIME
     Route: 045
     Dates: start: 201811, end: 201811
  7. ATORVASTATIN [Concomitant]
     Active Substance: ATORVASTATIN

REACTIONS (2)
  - Hypoaesthesia oral [Recovered/Resolved]
  - Nervousness [Recovered/Resolved]

NARRATIVE: CASE EVENT DATE: 201811
